FAERS Safety Report 10703686 (Version 1)
Quarter: 2015Q1

REPORT INFORMATION
  Report Type: Spontaneous
  Country: JP (occurrence: None)
  Receive Date: 20150108
  Receipt Date: 20150108
  Transmission Date: 20150721
  Serious: Yes (Other)
  Sender: FDA-Public Use
  Company Number: 201412IM008240

PATIENT
  Sex: Male

DRUGS (1)
  1. PIRESPA (PIRFENIDONE) [Suspect]
     Active Substance: PIRFENIDONE
     Indication: IDIOPATHIC PULMONARY FIBROSIS
     Route: 048
     Dates: start: 20141215, end: 20141217

REACTIONS (1)
  - Cerebellar infarction [None]

NARRATIVE: CASE EVENT DATE: 20141217
